FAERS Safety Report 10634823 (Version 9)
Quarter: 2015Q3

REPORT INFORMATION
  Report Type: Spontaneous
  Country: US (occurrence: US)
  Receive Date: 20141205
  Receipt Date: 20150706
  Transmission Date: 20151125
  Serious: Yes (Hospitalization, Other)
  Sender: FDA-Public Use
  Company Number: US-PFIZER INC-2014306726

PATIENT
  Age: 78 Year
  Sex: Male
  Weight: 84 kg

DRUGS (26)
  1. SIMVASTATIN. [Concomitant]
     Active Substance: SIMVASTATIN
     Dosage: 40 MG, 1X/DAY (P.M.)
     Dates: start: 200712
  2. ZINC [Concomitant]
     Active Substance: ZINC\ZINC CHLORIDE
     Dosage: 50 MG, 1X/DAY IN THE P.M.
     Dates: start: 2013
  3. CLOBETASOL [Concomitant]
     Active Substance: CLOBETASOL
     Indication: PRURITUS
     Dosage: UNK, AS NEEDED
  4. CORTIZONE 10 [Concomitant]
     Active Substance: HYDROCORTISONE
     Dosage: 10
  5. VITAMIN C [Concomitant]
     Active Substance: ASCORBIC ACID
     Dosage: 500 MG, 1X/DAY
  6. METOPROLOL ER [Concomitant]
     Active Substance: METOPROLOL SUCCINATE
     Dosage: 50 MG, 1X/DAY (A.M.)
     Dates: start: 200712
  7. PANTOPRAZOLE [Concomitant]
     Active Substance: PANTOPRAZOLE SODIUM
     Dosage: 40 MG, 1X/DAY (A.M.)
     Dates: start: 200712
  8. VITAMIN E [Concomitant]
     Active Substance: .ALPHA.-TOCOPHEROL
     Dosage: 400 MG 1 X DAY IN THE A.M
     Dates: start: 2013
  9. TRIAMCINOLONE [Concomitant]
     Active Substance: TRIAMCINOLONE
     Dosage: 0.1 %, UNK
  10. DIGOXIN. [Concomitant]
     Active Substance: DIGOXIN
     Dosage: 0.125 MG, 1X/DAY(P.M)
     Dates: start: 200712
  11. OXYGEN. [Concomitant]
     Active Substance: OXYGEN
     Dosage: 3-1/2 LITERS - 24/7
     Dates: start: 2009
  12. VITAMINS WITH MINERALS [Concomitant]
     Active Substance: MINERALS\VITAMINS
     Dosage: A.M.
  13. REVATIO [Suspect]
     Active Substance: SILDENAFIL CITRATE
     Dosage: 20 MG, 3-4 TABS
  14. REMODULIN [Concomitant]
     Active Substance: TREPROSTINIL
     Indication: PULMONARY ARTERIAL HYPERTENSION
     Dosage: UNK
     Route: 058
     Dates: start: 20130328
  15. BUMETANIDE. [Concomitant]
     Active Substance: BUMETANIDE
     Dosage: 2 MG, 1X/DAY
     Dates: start: 201412
  16. POTASSIUM CHLORIDE. [Concomitant]
     Active Substance: POTASSIUM CHLORIDE
     Dosage: 20 MEQ, 1X/DAY AS NEEDED WITH DIURETIC
     Dates: start: 200712
  17. MAGNESIUM [Concomitant]
     Active Substance: MAGNESIUM
     Dosage: 500 MG, 1X/DAY
     Dates: start: 2014
  18. REVATIO [Suspect]
     Active Substance: SILDENAFIL CITRATE
     Dosage: 80 MG, 3X/DAY
     Dates: start: 2010
  19. ALLOPURINOL. [Concomitant]
     Active Substance: ALLOPURINOL
     Dosage: 150 MG, 1X/DAY (NOON)
     Dates: start: 200712
  20. WARFARIN [Concomitant]
     Active Substance: WARFARIN
     Dosage: 5 MG - M,W,F - 2.5MG -S, TU, TH, S
     Dates: start: 200712
  21. REVATIO [Suspect]
     Active Substance: SILDENAFIL CITRATE
     Indication: PULMONARY ARTERIAL HYPERTENSION
     Dosage: FOUR-20MG, 3 TIMES A DAY
     Dates: start: 200807
  22. REVATIO [Suspect]
     Active Substance: SILDENAFIL CITRATE
     Dosage: UNK
  23. HYDROCODONE/APAP [Concomitant]
     Active Substance: ACETAMINOPHEN\HYDROCODONE BITARTRATE
     Indication: PAIN
     Dosage: 5/325 TABLETS, AS NEEDED
  24. VITAMIN D3 [Concomitant]
     Active Substance: CHOLECALCIFEROL
     Dosage: 1000 IU, 1X/DAY AT NOON
  25. REVATIO [Suspect]
     Active Substance: SILDENAFIL CITRATE
     Dosage: UNK
  26. GABAPENTIN. [Concomitant]
     Active Substance: GABAPENTIN
     Indication: PAIN
     Dosage: 600 MG, AS NEEDED
     Dates: start: 200906

REACTIONS (2)
  - Cardiac failure congestive [Not Recovered/Not Resolved]
  - Pulmonary hypertension [Not Recovered/Not Resolved]

NARRATIVE: CASE EVENT DATE: 201303
